FAERS Safety Report 4590677-2 (Version None)
Quarter: 2005Q1

REPORT INFORMATION
  Report Type: 
  Country: None (occurrence: None)
  Receive Date: 20050224
  Receipt Date: 20050216
  Transmission Date: 20050727
  Serious: Yes (Death, Hospitalization)
  Sender: FDA-Public Use
  Company Number: ES-ABBOTT-05P-144-0291055-00

PATIENT
  Sex: Male

DRUGS (4)
  1. KALETRA [Suspect]
     Indication: HIV INFECTION
     Route: 048
     Dates: start: 20040116, end: 20040402
  2. GANCICLOVIR [Concomitant]
     Indication: CYTOMEGALOVIRUS INFECTION
     Dates: start: 20050101
  3. ANFOTERICINA B [Concomitant]
     Indication: LEISHMANIASIS
     Dates: start: 20050101
  4. LAMIVUDINE AND ZIDOVUDINE [Concomitant]
     Indication: HIV INFECTION
     Dates: start: 20050116

REACTIONS (2)
  - CYTOMEGALOVIRUS COLITIS [None]
  - VISCERAL LEISHMANIASIS [None]
